FAERS Safety Report 23533781 (Version 1)
Quarter: 2024Q1

REPORT INFORMATION
  Report Type: Spontaneous
  Country: FR (occurrence: FR)
  Receive Date: 20240216
  Receipt Date: 20240216
  Transmission Date: 20240410
  Serious: Yes (Other)
  Sender: FDA-Public Use
  Company Number: None

PATIENT
  Age: 32 Year
  Sex: Male

DRUGS (3)
  1. ALPRAZOLAM [Suspect]
     Active Substance: ALPRAZOLAM
     Indication: Product used for unknown indication
     Dosage: 12.5 MILLIGRAM (12.5 MG)
     Route: 048
     Dates: start: 20231218, end: 20231218
  2. PAROXETINE [Suspect]
     Active Substance: PAROXETINE
     Indication: Product used for unknown indication
     Dosage: 280 MILLIGRAM (280 MG)
     Route: 048
     Dates: start: 20231218, end: 20231218
  3. CANNABIS SATIVA SUBSP. INDICA TOP [Suspect]
     Active Substance: CANNABIS SATIVA SUBSP. INDICA TOP
     Indication: Product used for unknown indication
     Dosage: UNK (4-5 JOINTS PER DAY)
     Route: 055
     Dates: start: 2005

REACTIONS (3)
  - Poisoning deliberate [Recovered/Resolved]
  - Drug abuse [Recovering/Resolving]
  - Somnolence [Recovered/Resolved]

NARRATIVE: CASE EVENT DATE: 20231218
